FAERS Safety Report 13105865 (Version 2)
Quarter: 2017Q1

REPORT INFORMATION
  Report Type: Spontaneous
  Country: US (occurrence: US)
  Receive Date: 20170111
  Receipt Date: 20170327
  Transmission Date: 20170428
  Serious: Yes (Hospitalization, Other)
  Sender: FDA-Public Use
  Company Number: US-PFIZER INC-2017010301

PATIENT
  Age: 75 Year
  Sex: Female

DRUGS (5)
  1. MS CONTIN [Suspect]
     Active Substance: MORPHINE SULFATE
     Indication: PAIN
     Dosage: 02.5 MG, UNK
     Dates: start: 2015, end: 20161216
  2. LYRICA [Suspect]
     Active Substance: PREGABALIN
     Indication: FIBROMYALGIA
  3. TYLENOL [Concomitant]
     Active Substance: ACETAMINOPHEN
     Indication: ARTHRITIS
     Dosage: UNK
  4. LYRICA [Suspect]
     Active Substance: PREGABALIN
     Indication: PAIN
     Dosage: 100 MG, 2X/DAY (EVERY 12 HOURS)
     Dates: start: 2014, end: 201606
  5. LYRICA [Suspect]
     Active Substance: PREGABALIN
     Indication: NEUROPATHY PERIPHERAL

REACTIONS (10)
  - Muscle twitching [Recovering/Resolving]
  - Sleep talking [Recovering/Resolving]
  - Nightmare [Recovering/Resolving]
  - Pain [Recovering/Resolving]
  - Burning sensation [Unknown]
  - Pain in extremity [Unknown]
  - Sleep terror [Unknown]
  - Seizure [Recovered/Resolved]
  - Pericardial effusion [Not Recovered/Not Resolved]
  - Drug withdrawal syndrome [Recovering/Resolving]

NARRATIVE: CASE EVENT DATE: 20140810
